FAERS Safety Report 5267777-7 (Version None)
Quarter: 2007Q1

REPORT INFORMATION
  Report Type: 
  Country: None (occurrence: None)
  Receive Date: 20070316
  Receipt Date: 20070305
  Transmission Date: 20070707
  Serious: Yes (Hospitalization, Other)
  Sender: FDA-Public Use
  Company Number: US-PFIZER INC-2007017685

PATIENT
  Sex: Female
  Weight: 54.4 kg

DRUGS (1)
  1. SUTENT [Suspect]
     Indication: METASTATIC RENAL CELL CARCINOMA
     Dates: start: 20070201, end: 20070303

REACTIONS (5)
  - ANAEMIA [None]
  - BLOOD COUNT ABNORMAL [None]
  - BLOOD LACTATE DEHYDROGENASE INCREASED [None]
  - EPISTAXIS [None]
  - THROMBOCYTOPENIC PURPURA [None]
